FAERS Safety Report 9142918 (Version 1)
Quarter: 2013Q1

REPORT INFORMATION
  Report Type: Spontaneous
  Country: US (occurrence: US)
  Receive Date: 20130306
  Receipt Date: 20130306
  Transmission Date: 20140127
  Serious: No
  Sender: FDA-Public Use
  Company Number: US-PFIZER INC-2013076645

PATIENT
  Sex: 0

DRUGS (3)
  1. EFFEXOR XR [Suspect]
     Indication: DEPRESSION
     Dosage: 75 MG, UNK
  2. EFFEXOR XR [Suspect]
     Dosage: 150 MG, UNK
  3. CLONAZEPAM [Suspect]
     Dosage: UNK

REACTIONS (1)
  - Somnolence [Unknown]
